FAERS Safety Report 8914472 (Version 1)
Quarter: 2012Q4

REPORT INFORMATION
  Report Type: 
  Country: DE (occurrence: DE)
  Receive Date: 20121119
  Receipt Date: 20121119
  Transmission Date: 20130627
  Serious: Yes (Hospitalization)
  Sender: FDA-Public Use
  Company Number: DE-EISAI INC-E2080-00561-SPO-DE

PATIENT
  Sex: Female

DRUGS (4)
  1. INOVELON [Suspect]
     Indication: EPILEPSY
     Dosage: 2800 mg/day via PEG tube
     Dates: start: 201109, end: 201203
  2. OXCARBAZEPINE [Concomitant]
     Indication: EPILEPSY
     Dosage: 1500 mg/day via PEG tube
  3. RISPERIDON [Concomitant]
     Indication: AFFECTIVE DISORDER
     Dosage: 4 mg/day via PEG tube
     Dates: start: 201106
  4. CALCIUM D3 FORTE [Concomitant]
     Indication: OSTEOPENIA
     Dosage: 4000 IE+1000 mg/day via PEG tube
     Dates: start: 200808

REACTIONS (1)
  - Insomnia [Recovered/Resolved]
